FAERS Safety Report 16007062 (Version 1)
Quarter: 2019Q1

REPORT INFORMATION
  Report Type: Spontaneous
  Country: US (occurrence: US)
  Receive Date: 20190222
  Receipt Date: 20190222
  Transmission Date: 20190418
  Serious: No
  Sender: FDA-Public Use
  Company Number: US-ASTRAZENECA-2019SE17966

PATIENT
  Sex: Female
  Weight: 91.2 kg

DRUGS (4)
  1. PULMICORT FLEXHALER [Suspect]
     Active Substance: BUDESONIDE
     Indication: CHRONIC OBSTRUCTIVE PULMONARY DISEASE
     Route: 055
     Dates: start: 1990
  2. FLORADIL [Concomitant]
     Dosage: UNKNOWN
     Route: 065
  3. PULMICORT FLEXHALER [Suspect]
     Active Substance: BUDESONIDE
     Indication: CHILDHOOD ASTHMA
     Route: 055
     Dates: start: 1990
  4. ANORO ELLIPTA [Concomitant]
     Active Substance: UMECLIDINIUM BROMIDE\VILANTEROL TRIFENATATE
     Dosage: 1 PUFF IN THE MORNING, DAILY
     Route: 055

REACTIONS (8)
  - Cataract [Unknown]
  - Intentional product misuse [Unknown]
  - Visual impairment [Unknown]
  - Off label use [Unknown]
  - Asthma [Unknown]
  - Blood triglycerides increased [Unknown]
  - Diabetes mellitus [Unknown]
  - Dry eye [Unknown]
